FAERS Safety Report 7938909-4 (Version None)
Quarter: 2011Q4

REPORT INFORMATION
  Report Type: 
  Country: None (occurrence: None)
  Receive Date: 20111124
  Receipt Date: 20111115
  Transmission Date: 20120403
  Serious: Yes (Other)
  Sender: FDA-Public Use
  Company Number: CA-JNJFOC-20111107064

PATIENT
  Sex: Male
  Weight: 69.7 kg

DRUGS (7)
  1. PREDNISONE TAB [Suspect]
     Indication: PRODUCT USED FOR UNKNOWN INDICATION
     Dosage: STOPPED APPROXIMATELY IN 3RD WEEK OF SEP-2011
     Route: 065
  2. REMICADE [Suspect]
     Indication: COLITIS ULCERATIVE
     Route: 042
  3. REMICADE [Suspect]
     Route: 042
     Dates: start: 20110915
  4. NPH INSULIN [Concomitant]
     Route: 065
  5. ALL OTHER THERAPEUTIC PRODUCTS [Concomitant]
     Route: 065
  6. MESALAMINE [Concomitant]
     Route: 065
  7. NOVORAPID [Concomitant]
     Route: 065

REACTIONS (3)
  - DIARRHOEA [None]
  - DISCOMFORT [None]
  - ARTHRITIS [None]
